FAERS Safety Report 19140674 (Version 1)
Quarter: 2021Q2

REPORT INFORMATION
  Report Type: Spontaneous
  Country: US (occurrence: US)
  Receive Date: 20210415
  Receipt Date: 20210415
  Transmission Date: 20210717
  Serious: Yes (Hospitalization)
  Sender: FDA-Public Use
  Company Number: None

PATIENT
  Age: 82 Year
  Sex: Female

DRUGS (13)
  1. MESALAMINE. [Concomitant]
     Active Substance: MESALAMINE
  2. METOPROLOL TARTRATE. [Concomitant]
     Active Substance: METOPROLOL TARTRATE
  3. OXYCODONE [Concomitant]
     Active Substance: OXYCODONE
  4. FENTANYL. [Concomitant]
     Active Substance: FENTANYL
  5. PAROXETINE. [Concomitant]
     Active Substance: PAROXETINE
  6. XARELTO [Concomitant]
     Active Substance: RIVAROXABAN
  7. CAPECITABINE. [Suspect]
     Active Substance: CAPECITABINE
     Indication: BREAST CANCER FEMALE
     Dosage: ?          OTHER FREQUENCY:2 TABS AM +1TAB PM;?
     Route: 048
     Dates: start: 20190723
  8. LORAZEPAM. [Concomitant]
     Active Substance: LORAZEPAM
  9. MORPHIINE [Concomitant]
     Active Substance: MORPHINE
  10. OXYBUTYNIN. [Concomitant]
     Active Substance: OXYBUTYNIN CHLORIDE
  11. FLECAINIDE [Concomitant]
     Active Substance: FLECAINIDE
  12. OMEPRAZOLE. [Concomitant]
     Active Substance: OMEPRAZOLE
  13. PROCHLORPER [Concomitant]

REACTIONS (2)
  - Cardiac arrest [None]
  - Therapy interrupted [None]

NARRATIVE: CASE EVENT DATE: 20210408
